FAERS Safety Report 23281180 (Version 1)
Quarter: 2023Q4

REPORT INFORMATION
  Report Type: Report from Study
  Country: US (occurrence: US)
  Receive Date: 20231211
  Receipt Date: 20231211
  Transmission Date: 20240109
  Serious: No
  Sender: FDA-Public Use
  Company Number: US-ALXN-A202311296

PATIENT
  Sex: Male

DRUGS (1)
  1. ULTOMIRIS [Suspect]
     Active Substance: RAVULIZUMAB-CWVZ
     Indication: Myasthenia gravis
     Dosage: UNK, EVERY 6 WEEKS
     Route: 065

REACTIONS (4)
  - Off label use [Unknown]
  - Eyelid ptosis [Recovering/Resolving]
  - Dyspnoea exertional [Unknown]
  - Muscular weakness [Recovered/Resolved]
